FAERS Safety Report 5326337-X (Version None)
Quarter: 2007Q2

REPORT INFORMATION
  Report Type: 
  Country: None (occurrence: None)
  Receive Date: 20070516
  Receipt Date: 20070511
  Transmission Date: 20071010
  Serious: Yes (Death, Hospitalization)
  Sender: FDA-Public Use
  Company Number: A0648196A

PATIENT
  Age: 5 Year
  Sex: Female
  Weight: 14.2 kg

DRUGS (3)
  1. FLIXOTIDE [Suspect]
     Indication: ASTHMA
     Route: 055
  2. SERETIDE [Suspect]
     Indication: ASTHMA
     Dosage: 1PUFF TWICE PER DAY
     Route: 055
  3. MONTELUKAST SODIUM [Concomitant]

REACTIONS (30)
  - ABDOMINAL PAIN [None]
  - ADRENAL DISORDER [None]
  - ADRENAL INSUFFICIENCY [None]
  - ADRENAL SUPPRESSION [None]
  - BLOOD CHLORIDE DECREASED [None]
  - BLOOD GLUCOSE DECREASED [None]
  - BRAIN OEDEMA [None]
  - C-REACTIVE PROTEIN INCREASED [None]
  - CARDIOGENIC SHOCK [None]
  - CONVULSION [None]
  - DEPRESSED LEVEL OF CONSCIOUSNESS [None]
  - DISORIENTATION [None]
  - ENCEPHALOPATHY [None]
  - GLASGOW COMA SCALE ABNORMAL [None]
  - GRAND MAL CONVULSION [None]
  - HEADACHE [None]
  - HYPERTRICHOSIS [None]
  - HYPONATRAEMIA [None]
  - IRRITABILITY [None]
  - OVERDOSE [None]
  - PUPILLARY REFLEX IMPAIRED [None]
  - RENAL IMPAIRMENT [None]
  - RESPIRATORY ARREST [None]
  - STREPTOCOCCAL INFECTION [None]
  - TONSILLITIS [None]
  - TONSILLITIS STREPTOCOCCAL [None]
  - UNDERWEIGHT [None]
  - VISUAL ACUITY REDUCED [None]
  - VOMITING [None]
  - WHITE BLOOD CELL COUNT INCREASED [None]
